FAERS Safety Report 16457044 (Version 1)
Quarter: 2019Q3

REPORT INFORMATION
  Report Type: Spontaneous
  Country: US (occurrence: US)
  Receive Date: 20190619
  Receipt Date: 20190619
  Transmission Date: 20191004
  Serious: Yes (Life-Threatening, Hospitalization, Disabling)
  Sender: FDA-Public Use
  Company Number: None

PATIENT
  Age: 74 Year
  Sex: Male
  Weight: 72 kg

DRUGS (1)
  1. KEYTRUDA [Suspect]
     Active Substance: PEMBROLIZUMAB
     Indication: LUNG NEOPLASM MALIGNANT
     Dates: start: 20190520, end: 20190520

REACTIONS (4)
  - Toxic encephalopathy [None]
  - General physical health deterioration [None]
  - Pulmonary oedema [None]
  - Dementia [None]

NARRATIVE: CASE EVENT DATE: 20190520
